FAERS Safety Report 13106116 (Version 1)
Quarter: 2017Q1

REPORT INFORMATION
  Report Type: Spontaneous
  Country: FR (occurrence: FR)
  Receive Date: 20170111
  Receipt Date: 20170111
  Transmission Date: 20170428
  Serious: Yes (Hospitalization, Congenital Anomaly)
  Sender: FDA-Public Use
  Company Number: FR-ASTRAZENECA-2017SE01867

PATIENT
  Age: 0 Week
  Sex: Male
  Weight: 3 kg

DRUGS (8)
  1. ASPEGIC [Suspect]
     Active Substance: ASPIRIN DL-LYSINE
     Dosage: 100.0MG UNKNOWN
     Route: 064
  2. INEXIUM [Suspect]
     Active Substance: ESOMEPRAZOLE
     Indication: DYSLIPIDAEMIA
     Route: 064
  3. LAROXYL [Suspect]
     Active Substance: AMITRIPTYLINE
     Route: 064
  4. CORTANCYL [Suspect]
     Active Substance: PREDNISONE
     Indication: POLYARTERITIS NODOSA
     Route: 064
  5. SIMVASTATINE [Suspect]
     Active Substance: SIMVASTATIN
     Route: 064
  6. CORTANCYL [Suspect]
     Active Substance: PREDNISONE
     Indication: RETROPERITONEAL FIBROSIS
     Route: 064
  7. NEURONTIN [Suspect]
     Active Substance: GABAPENTIN
     Route: 064
  8. CORTANCYL [Suspect]
     Active Substance: PREDNISONE
     Indication: VASCULITIS
     Route: 064

REACTIONS (5)
  - Oligohydramnios [Unknown]
  - Cleft palate [Unknown]
  - Poor sucking reflex [Recovered/Resolved]
  - Renal cyst [Unknown]
  - Agitation [Recovered/Resolved]

NARRATIVE: CASE EVENT DATE: 20091030
